FAERS Safety Report 13656493 (Version 3)
Quarter: 2018Q1

REPORT INFORMATION
  Report Type: Spontaneous
  Country: LB (occurrence: LB)
  Receive Date: 20170615
  Receipt Date: 20180220
  Transmission Date: 20180508
  Serious: Yes (Other)
  Sender: FDA-Public Use
  Company Number: LB-AMGEN-LBNSP2017088335

PATIENT
  Age: 64 Year
  Sex: Female
  Weight: 52 kg

DRUGS (4)
  1. PROLIA [Suspect]
     Active Substance: DENOSUMAB
     Dosage: 60 MG, Q6MO
     Route: 058
     Dates: start: 20170228
  2. CALCIUM [Concomitant]
     Active Substance: CALCIUM
     Dosage: UNK
  3. PROLIA [Suspect]
     Active Substance: DENOSUMAB
     Indication: OSTEOPOROSIS POSTMENOPAUSAL
     Dosage: 60 MG, Q6MO
     Route: 058
     Dates: start: 20121023, end: 20150922
  4. VITAMIN D [Concomitant]
     Active Substance: CHOLECALCIFEROL
     Dosage: UNK

REACTIONS (7)
  - Dental restoration failure [Unknown]
  - Implant site dehiscence [Recovered/Resolved]
  - Toothache [Unknown]
  - Osteonecrosis of jaw [Recovered/Resolved]
  - Osteoporosis [Unknown]
  - Tooth extraction [Unknown]
  - Implant site swelling [Recovering/Resolving]

NARRATIVE: CASE EVENT DATE: 201511
